FAERS Safety Report 8813176 (Version 1)
Quarter: 2012Q4

REPORT INFORMATION
  Report Type: 
  Country: US (occurrence: US)
  Receive Date: 20120927
  Receipt Date: 20120927
  Transmission Date: 20130627
  Serious: No
  Sender: FDA-Public Use
  Company Number: US-AMGEN-USASP2012038011

PATIENT
  Age: 84 Year
  Sex: Female
  Weight: 60.77 kg

DRUGS (5)
  1. PROLIA [Suspect]
     Indication: OSTEOPOROSIS POSTMENOPAUSAL
     Dosage: 60 mg, q6mo
     Dates: start: 20120611, end: 20120611
  2. HYDROCHLOROTHIAZIDE W/TRIAMTERENE [Concomitant]
     Indication: HYPERTENSION
     Dosage: UNK
     Dates: start: 200609
  3. PROCARDIA [Concomitant]
     Indication: HYPERTENSION
     Dosage: UNK
     Dates: start: 200609
  4. NIACIN [Concomitant]
     Dosage: UNK
     Dates: start: 200609
  5. ACETYLSALICYLIC ACID [Concomitant]
     Indication: HYPERLIPIDAEMIA
     Dosage: 81 g, qd
     Dates: start: 200802

REACTIONS (2)
  - Rash [Recovered/Resolved]
  - Urticaria [Recovered/Resolved]
